FAERS Safety Report 21925391 (Version 2)
Quarter: 2023Q1

REPORT INFORMATION
  Report Type: Spontaneous
  Country: JP (occurrence: JP)
  Receive Date: 20230130
  Receipt Date: 20230214
  Transmission Date: 20230417
  Serious: Yes (Other)
  Sender: FDA-Public Use
  Company Number: JP-ABBVIE-4250258

PATIENT
  Age: 15 Year
  Sex: Male

DRUGS (4)
  1. RINVOQ [Suspect]
     Active Substance: UPADACITINIB
     Indication: Dermatitis atopic
     Dosage: 15 MILLIGRAM
     Route: 048
     Dates: start: 20221026, end: 20230123
  2. ROXITHROMYCIN [Suspect]
     Active Substance: ROXITHROMYCIN
     Indication: Acne conglobata
     Route: 065
  3. PREDNISOLONE [Concomitant]
     Active Substance: PREDNISOLONE
     Indication: Product used for unknown indication
  4. CLINDAMYCIN PHOSPHATE [Suspect]
     Active Substance: CLINDAMYCIN PHOSPHATE
     Indication: Acne conglobata
     Route: 065

REACTIONS (6)
  - Acne conglobata [Not Recovered/Not Resolved]
  - Lymphadenopathy [Recovered/Resolved]
  - Folliculitis [Unknown]
  - White blood cell count increased [Not Recovered/Not Resolved]
  - Drug ineffective [Unknown]
  - Drug ineffective [Unknown]

NARRATIVE: CASE EVENT DATE: 20221207
